FAERS Safety Report 4462664-6 (Version None)
Quarter: 2004Q3

REPORT INFORMATION
  Report Type: 
  Country: None (occurrence: None)
  Receive Date: 20040927
  Receipt Date: 20040927
  Transmission Date: 20050211
  Serious: Yes (Hospitalization)
  Sender: FDA-Public Use
  Company Number: None

PATIENT
  Sex: Male
  Weight: 88.4514 kg

DRUGS (2)
  1. PANGLOBULIN [Suspect]
     Indication: ASTHENIA
     Dosage: 0.49/LG/DAY IV X 5 DAYS
     Route: 042
     Dates: start: 20040823
  2. PANGLOBULIN [Suspect]

REACTIONS (5)
  - BLOOD PRESSURE INCREASED [None]
  - BODY TEMPERATURE INCREASED [None]
  - CHILLS [None]
  - INFUSION RELATED REACTION [None]
  - TREMOR [None]
